FAERS Safety Report 22377263 (Version 1)
Quarter: 2023Q2

REPORT INFORMATION
  Report Type: Spontaneous
  Country: FR (occurrence: FR)
  Receive Date: 20230529
  Receipt Date: 20230529
  Transmission Date: 20230722
  Serious: Yes (Other)
  Sender: FDA-Public Use
  Company Number: FR-AFSSAPS-DJ2023000648

PATIENT
  Age: 36 Year
  Sex: Male
  Weight: 75 kg

DRUGS (3)
  1. PANTOPRAZOLE SODIUM [Suspect]
     Active Substance: PANTOPRAZOLE SODIUM
     Indication: Prophylaxis against gastrointestinal ulcer
     Dosage: 20 MILLIGRAM
     Route: 048
     Dates: start: 20230314, end: 20230318
  2. CEFAZOLIN SODIUM [Suspect]
     Active Substance: CEFAZOLIN SODIUM
     Indication: Gait disturbance
     Dosage: 2 GRAM
     Route: 042
     Dates: start: 20230314, end: 20230314
  3. KETOPROFEN [Suspect]
     Active Substance: KETOPROFEN
     Indication: Gait disturbance
     Dosage: 200 MILLIGRAM
     Route: 048
     Dates: start: 20230314, end: 20230318

REACTIONS (1)
  - Liver injury [Recovering/Resolving]

NARRATIVE: CASE EVENT DATE: 20230321
